FAERS Safety Report 4966552-8 (Version None)
Quarter: 2006Q2

REPORT INFORMATION
  Report Type: 
  Country: None (occurrence: None)
  Receive Date: 20060407
  Receipt Date: 20060329
  Transmission Date: 20061013
  Serious: Yes (Hospitalization)
  Sender: FDA-Public Use
  Company Number: TH-JNJFOC-20060307172

PATIENT
  Sex: Female
  Weight: 55 kg

DRUGS (6)
  1. RISPERDAL [Suspect]
     Indication: SCHIZOPHRENIA
  2. ZOLPIDEM TARTRATE [Suspect]
  3. ZOLPIDEM TARTRATE [Suspect]
  4. ZOLPIDEM TARTRATE [Suspect]
  5. ZOLPIDEM TARTRATE [Suspect]
     Indication: INSOMNIA
  6. BIFEPRUNOX [Concomitant]

REACTIONS (3)
  - INTENTIONAL OVERDOSE [None]
  - PSYCHOTIC DISORDER [None]
  - SUICIDE ATTEMPT [None]
